FAERS Safety Report 20976260 (Version 2)
Quarter: 2022Q3

REPORT INFORMATION
  Report Type: Spontaneous
  Country: US (occurrence: US)
  Receive Date: 20220617
  Receipt Date: 20220707
  Transmission Date: 20221026
  Serious: No
  Sender: FDA-Public Use
  Company Number: US-PFIZER INC-202200843389

PATIENT
  Age: 81 Year
  Sex: Female
  Weight: 46.27 kg

DRUGS (1)
  1. OXAPROZIN [Suspect]
     Active Substance: OXAPROZIN
     Dosage: UNK

REACTIONS (1)
  - Illness [Unknown]
